FAERS Safety Report 4469724-4 (Version None)
Quarter: 2004Q4

REPORT INFORMATION
  Report Type: 
  Country: None (occurrence: None)
  Receive Date: 20041008
  Receipt Date: 20040930
  Transmission Date: 20050328
  Serious: Yes (Other)
  Sender: FDA-Public Use
  Company Number: US-JNJFOC-20040706420

PATIENT
  Age: 74 Year
  Sex: Male

DRUGS (16)
  1. NATRECOR [Suspect]
     Route: 042
  2. NATRECOR [Suspect]
     Indication: DRUG USE FOR UNKNOWN INDICATION
     Route: 042
  3. COUMADIN [Suspect]
  4. SENOKOT [Concomitant]
     Indication: CONSTIPATION
  5. TIKASYN [Concomitant]
     Dosage: Q12
  6. BUMEX [Concomitant]
  7. COREG [Concomitant]
  8. ZOCOR [Concomitant]
     Dosage: QHS
  9. K-DUR 10 [Concomitant]
  10. ALDACTONE [Concomitant]
     Dosage: 1/2 TAB
  11. DIGOXIN [Concomitant]
  12. DIOVAN HCT [Concomitant]
  13. DIOVAN HCT [Concomitant]
  14. PAXIL [Concomitant]
  15. AMITRIPTYLINE HCL [Concomitant]
     Dosage: AT NIGHT
  16. AMBIEN [Concomitant]

REACTIONS (15)
  - ARTHRITIS [None]
  - BLOOD CREATININE INCREASED [None]
  - BLOOD UREA INCREASED [None]
  - CATHETER SITE INFECTION [None]
  - CONSTIPATION [None]
  - DERMATITIS CONTACT [None]
  - DIARRHOEA [None]
  - DYSPNOEA EXERTIONAL [None]
  - FUNGAL INFECTION [None]
  - HEAT RASH [None]
  - HYPOTENSION [None]
  - INTERNATIONAL NORMALISED RATIO INCREASED [None]
  - MEDICATION ERROR [None]
  - RASH ERYTHEMATOUS [None]
  - RASH PRURITIC [None]
